FAERS Safety Report 8333590-7 (Version None)
Quarter: 2012Q2

REPORT INFORMATION
  Report Type: 
  Country: None (occurrence: None)
  Receive Date: 20120503
  Receipt Date: 20110128
  Transmission Date: 20120825
  Serious: Yes (Other)
  Sender: FDA-Public Use
  Company Number: US-TEVA-2010006110

PATIENT
  Sex: Female
  Weight: 59.02 kg

DRUGS (5)
  1. LEVOXYL [Concomitant]
  2. NUVIGIL [Suspect]
     Indication: CRANIOCEREBRAL INJURY
     Dosage: 75 MILLIGRAM;
     Route: 048
     Dates: start: 20101101, end: 20101121
  3. AMERGE [Concomitant]
     Dates: start: 20080101
  4. CYTOMEL [Concomitant]
  5. VITAMIN TAB [Concomitant]

REACTIONS (6)
  - HEADACHE [None]
  - CHEST DISCOMFORT [None]
  - ABDOMINAL PAIN UPPER [None]
  - PALPITATIONS [None]
  - PYREXIA [None]
  - NAUSEA [None]
